FAERS Safety Report 15159932 (Version 3)
Quarter: 2018Q3

REPORT INFORMATION
  Report Type: Spontaneous
  Country: PL (occurrence: PL)
  Receive Date: 20180718
  Receipt Date: 20180903
  Transmission Date: 20181010
  Serious: Yes (Other)
  Sender: FDA-Public Use
  Company Number: PL-009507513-1807POL006203

PATIENT
  Age: 82 Year
  Sex: Female

DRUGS (3)
  1. TRIDERM [Suspect]
     Active Substance: TRIAMCINOLONE ACETONIDE
     Indication: EAR PRURITUS
     Dosage: 1 DF, QD
     Route: 061
     Dates: start: 20180614, end: 20180711
  2. BETALOC ZOK [Concomitant]
     Active Substance: METOPROLOL SUCCINATE
     Indication: HYPERTENSION
     Dosage: UNK
  3. LORISTA [Concomitant]
     Active Substance: LOSARTAN POTASSIUM
     Indication: HYPERTENSION

REACTIONS (2)
  - Tinnitus [Not Recovered/Not Resolved]
  - Deafness unilateral [Not Recovered/Not Resolved]

NARRATIVE: CASE EVENT DATE: 201806
